FAERS Safety Report 23055828 (Version 1)
Quarter: 2023Q4

REPORT INFORMATION
  Report Type: Spontaneous
  Country: GB (occurrence: GB)
  Receive Date: 20231011
  Receipt Date: 20231011
  Transmission Date: 20240110
  Serious: Yes (Other)
  Sender: FDA-Public Use
  Company Number: None

PATIENT
  Age: 87 Year
  Sex: Female
  Weight: 68 kg

DRUGS (20)
  1. MIRTAZAPINE [Suspect]
     Active Substance: MIRTAZAPINE
     Indication: Product used for unknown indication
     Dosage: 15 MILLIGRAM DAILY; AT NIGHT
     Dates: start: 20230921, end: 20230927
  2. BUMETANIDE [Concomitant]
     Active Substance: BUMETANIDE
     Indication: Product used for unknown indication
     Dosage: 1 DOSAGE FORMS DAILY; EACH MORNING
     Dates: start: 20230711, end: 20230905
  3. CEPHALEXIN [Concomitant]
     Active Substance: CEPHALEXIN
     Indication: Product used for unknown indication
     Dosage: 20 ML DAILY;
     Dates: start: 20230727, end: 20230801
  4. DOCUSATE SODIUM [Concomitant]
     Active Substance: DOCUSATE SODIUM
     Indication: Product used for unknown indication
     Dosage: 4 DOSAGE FORMS DAILY; DECREASE DOSE AS...
     Dates: start: 20230927
  5. FENBID [Concomitant]
     Indication: Pain
     Dosage: 3 DOSAGE FORMS DAILY; APPLY TO PAINFUL AREA(S) (BRA...
     Route: 061
     Dates: start: 20230907
  6. FENTANYL [Concomitant]
     Active Substance: FENTANYL
     Indication: Product used for unknown indication
     Dosage: *ANTICIPATORY MEDICATION* INJECT 12.5MCG SUBCUT...
     Route: 058
     Dates: start: 20230727, end: 20230803
  7. FOLIC ACID [Concomitant]
     Active Substance: FOLIC ACID
     Indication: Product used for unknown indication
     Dosage: 1 DOSAGE FORMS DAILY; IN THE MORNING
     Dates: start: 20230317
  8. FOSFOMYCIN [Concomitant]
     Active Substance: FOSFOMYCIN
     Indication: Urinary tract infection
     Dosage: 2ND LINE IF }65 OR RISK FACTO...
     Dates: start: 20230927
  9. BUTYLSCOPOLAMINE BROMIDE [Concomitant]
     Active Substance: BUTYLSCOPOLAMINE BROMIDE
     Indication: Product used for unknown indication
     Dosage: *ANTICIPATORY MEDICATION*  20MG (1ML) TO BE INJ...
     Dates: start: 20230727, end: 20230801
  10. LACTULOSE [Concomitant]
     Active Substance: LACTULOSE
     Indication: Prophylaxis
     Dosage: 60 ML DAILY; PREVENT HEPATIC ENCE...
     Dates: start: 20230727
  11. POLYETHYLENE GLYCOL 3350\POTASSIUM CHLORIDE\SODIUM BICARBONATE\SODIUM [Concomitant]
     Active Substance: POLYETHYLENE GLYCOL 3350\POTASSIUM CHLORIDE\SODIUM BICARBONATE\SODIUM CHLORIDE
     Indication: Product used for unknown indication
     Dosage: 2 DOSAGE FORMS DAILY; MAINTENANCE TWO SACHETS DAILY IN DIVIDED DOSES ...
     Dates: start: 20230418, end: 20230727
  12. LEVOMEPROMAZINE [Concomitant]
     Active Substance: LEVOMEPROMAZINE
     Indication: Product used for unknown indication
     Dosage: *ANTICIPATORY MEDICATION* ,0.25 ML
     Dates: start: 20230727, end: 20230801
  13. LEVOTHYROXINE [Concomitant]
     Active Substance: LEVOTHYROXINE
     Indication: Product used for unknown indication
     Dosage: 1 DOSAGE FORMS DAILY; EACH MORNING HALF AN HOUR BEFORE FOOD ...
     Dates: start: 20230317
  14. MIDAZOLAM [Concomitant]
     Active Substance: MIDAZOLAM
     Indication: Product used for unknown indication
     Dosage: *ANTICIPATORY MEDICATION* 0.5 ML
     Dates: start: 20230727, end: 20230801
  15. OMEPRAZOLE [Concomitant]
     Active Substance: OMEPRAZOLE
     Indication: Product used for unknown indication
     Dosage: 4 DOSAGE FORMS DAILY;
     Dates: start: 20230317
  16. ACETAMINOPHEN [Concomitant]
     Active Substance: ACETAMINOPHEN
     Indication: Product used for unknown indication
     Dosage: TAKE ONE OR TWO TABLETS UP TO FOUR TIMES A DAY ...
     Dates: start: 20230317
  17. AMDINOCILLIN PIVOXIL [Concomitant]
     Active Substance: AMDINOCILLIN PIVOXIL
     Indication: Urinary tract infection
     Dosage: 2ND LINE IF }65 OR RISK FACTO...
     Dates: start: 20230712, end: 20230715
  18. RIFAXIMIN [Concomitant]
     Active Substance: RIFAXIMIN
     Indication: Product used for unknown indication
     Dosage: 2 DOSAGE FORMS DAILY; IN THE MORNING AND ONE AT TEATIME
     Dates: start: 20230317
  19. SENNA [Concomitant]
     Active Substance: SENNA LEAF\SENNOSIDES\SENNOSIDES A AND B
     Indication: Constipation
     Dosage: TAKE ONE OR TWO TABLETS AT NIGHT FOR CONSTIPATI...
     Dates: start: 20230927
  20. MIRTAZAPINE [Concomitant]
     Active Substance: MIRTAZAPINE
     Indication: Product used for unknown indication
     Dosage: 1 DOSAGE FORMS DAILY; AT NIGHT
     Dates: start: 20230921, end: 20230927

REACTIONS (2)
  - Jaundice [Unknown]
  - Sedation [Unknown]
